FAERS Safety Report 22218661 (Version 1)
Quarter: 2023Q2

REPORT INFORMATION
  Report Type: Spontaneous
  Country: FR (occurrence: FR)
  Receive Date: 20230417
  Receipt Date: 20230417
  Transmission Date: 20230722
  Serious: Yes (Life-Threatening, Other)
  Sender: FDA-Public Use
  Company Number: FR-AMGEN-FRASP2023062987

PATIENT

DRUGS (2)
  1. BEVACIZUMAB [Suspect]
     Active Substance: BEVACIZUMAB
     Indication: Hepatocellular carcinoma
     Dosage: 15 MILLIGRAM/KG
     Route: 042
  2. ATEZOLIZUMAB [Concomitant]
     Active Substance: ATEZOLIZUMAB
     Indication: Hepatocellular carcinoma
     Dosage: 1200 MILLIGRAM, Q3WK
     Route: 042

REACTIONS (30)
  - Death [Unknown]
  - Hepatic failure [Unknown]
  - Pulmonary arterial hypertension [Unknown]
  - Uveitis [Unknown]
  - Atrial fibrillation [Unknown]
  - Hepatocellular carcinoma [Unknown]
  - Anaphylactic reaction [Unknown]
  - Rectal haemorrhage [Unknown]
  - Intestinal obstruction [Unknown]
  - Hypertension [Unknown]
  - Proteinuria [Unknown]
  - Jaundice [Unknown]
  - Hyperkeratosis [Unknown]
  - Pruritus [Unknown]
  - Dry mouth [Unknown]
  - Erythema [Unknown]
  - Adverse event [Unknown]
  - Blood albumin abnormal [Unknown]
  - Blood bilirubin abnormal [Unknown]
  - Liver function test abnormal [Unknown]
  - Thyroid disorder [Unknown]
  - Oedema [Unknown]
  - Nausea [Unknown]
  - Epistaxis [Unknown]
  - Decreased appetite [Unknown]
  - Abdominal pain [Unknown]
  - Asthenia [Unknown]
  - Vomiting [Unknown]
  - Therapy partial responder [Unknown]
  - Off label use [Unknown]
